FAERS Safety Report 5670309-2 (Version None)
Quarter: 2008Q1

REPORT INFORMATION
  Report Type: 
  Country: None (occurrence: None)
  Receive Date: 20080314
  Receipt Date: 20080314
  Transmission Date: 20080703
  Serious: Yes (Other)
  Sender: FDA-Public Use
  Company Number: None

PATIENT
  Age: 69 Year
  Sex: Male
  Weight: 71.2147 kg

DRUGS (4)
  1. CIPRO [Suspect]
     Indication: BRONCHITIS
     Dosage: 1 PER DAY PO
     Route: 048
     Dates: start: 20060703, end: 20060801
  2. CIPRO [Suspect]
     Indication: CYSTITIS
     Dosage: 1 PER DAY PO
     Route: 048
     Dates: start: 20060703, end: 20060801
  3. CIPRO [Suspect]
     Indication: BRONCHITIS
     Dosage: 1 PER DAY PO
     Route: 048
     Dates: start: 20071204, end: 20071214
  4. CIPRO [Suspect]
     Indication: CYSTITIS
     Dosage: 1 PER DAY PO
     Route: 048
     Dates: start: 20071204, end: 20071214

REACTIONS (8)
  - CHOKING [None]
  - DIZZINESS [None]
  - FOOD ALLERGY [None]
  - INFECTION [None]
  - PANIC ATTACK [None]
  - REACTION TO PRESERVATIVES [None]
  - THROAT TIGHTNESS [None]
  - UNEVALUABLE EVENT [None]
